FAERS Safety Report 24739394 (Version 1)
Quarter: 2024Q4

REPORT INFORMATION
  Report Type: Spontaneous
  Country: TW (occurrence: TW)
  Receive Date: 20241216
  Receipt Date: 20241216
  Transmission Date: 20250115
  Serious: Yes (Death)
  Sender: INCYTE
  Company Number: TW-002147023-NVSC2024TW236307

PATIENT

DRUGS (1)
  1. RUXOLITINIB [Suspect]
     Active Substance: RUXOLITINIB
     Indication: Graft versus host disease
     Dosage: UNK
     Route: 065
     Dates: start: 202404, end: 202409

REACTIONS (2)
  - Chronic graft versus host disease in lung [Fatal]
  - Infection [Fatal]
